FAERS Safety Report 20071335 (Version 1)
Quarter: 2021Q4

REPORT INFORMATION
  Report Type: Spontaneous
  Country: US (occurrence: US)
  Receive Date: 20211115
  Receipt Date: 20211115
  Transmission Date: 20220303
  Serious: No
  Sender: FDA-Public Use
  Company Number: US-THE RITEDOSE CORPORATION-2021RIT000222

PATIENT

DRUGS (4)
  1. IPRATROPIUM BROMIDE AND ALBUTEROL SULFATE [Suspect]
     Active Substance: ALBUTEROL SULFATE\IPRATROPIUM BROMIDE
     Indication: Pulmonary congestion
     Dosage: 1 VIAL, BID
     Route: 055
     Dates: start: 20210723
  2. IPRATROPIUM BROMIDE AND ALBUTEROL SULFATE [Suspect]
     Active Substance: ALBUTEROL SULFATE\IPRATROPIUM BROMIDE
     Dosage: 1 VIAL, BID
     Route: 055
     Dates: start: 202108
  3. IVERMECTIN [Concomitant]
     Active Substance: IVERMECTIN
     Indication: Pulmonary congestion
     Dosage: UNK
  4. DOXYCYCLINE [Concomitant]
     Active Substance: DOXYCYCLINE
     Indication: Pulmonary congestion
     Dosage: UNK

REACTIONS (2)
  - Drug ineffective [Unknown]
  - Product quality issue [Unknown]

NARRATIVE: CASE EVENT DATE: 20210101
